FAERS Safety Report 5961480-3 (Version None)
Quarter: 2008Q4

REPORT INFORMATION
  Report Type: 
  Country: None (occurrence: None)
  Receive Date: 20081121
  Receipt Date: 20081111
  Transmission Date: 20090506
  Serious: Yes (Other)
  Sender: FDA-Public Use
  Company Number: GR-ELI_LILLY_AND_COMPANY-GR200811002572

PATIENT
  Age: 77 Year
  Sex: Female
  Weight: 66 kg

DRUGS (6)
  1. FORTEO [Suspect]
     Indication: OSTEOPOROSIS
     Dosage: 1 D/F, UNKNOWN
     Route: 058
     Dates: start: 20080617
  2. LIPITOR [Concomitant]
     Dosage: 1 D/F, DAILY (1/D)
     Route: 065
  3. EZETROL [Concomitant]
     Dosage: 10 MG, DAILY (1/D)
     Route: 065
  4. PLAVIX [Concomitant]
     Dosage: 1 D/F, DAILY (1/D)
     Route: 065
  5. FLUDEX [Concomitant]
     Dosage: UNK, AS NEEDED
     Route: 065
  6. ACCUPRON [Concomitant]
     Dosage: 1 D/F, DAILY (1/D)
     Route: 065

REACTIONS (4)
  - DIARRHOEA [None]
  - DIZZINESS [None]
  - FOOD AVERSION [None]
  - GAIT DISTURBANCE [None]
